FAERS Safety Report 13995628 (Version 2)
Quarter: 2017Q4

REPORT INFORMATION
  Report Type: Spontaneous
  Country: US (occurrence: US)
  Receive Date: 20170921
  Receipt Date: 20171107
  Transmission Date: 20180321
  Serious: No
  Sender: FDA-Public Use
  Company Number: US-PFIZER INC-2017405234

PATIENT
  Age: 48 Year
  Sex: Female

DRUGS (4)
  1. ADVIL [Suspect]
     Active Substance: IBUPROFEN
     Indication: ARTHRALGIA
  2. ADVIL [Suspect]
     Active Substance: IBUPROFEN
     Indication: MYALGIA
     Dosage: 4 TABLETS A DAY BY MOUTH WITH FOOD
     Route: 048
     Dates: start: 1992
  3. ARIMIDEX [Concomitant]
     Active Substance: ANASTROZOLE
     Indication: NEOPLASM PROPHYLAXIS
     Dosage: 1MG CAPSULE BY MOUTH ONCE A DAY
     Route: 048
     Dates: start: 200408
  4. SYNTHROID [Concomitant]
     Active Substance: LEVOTHYROXINE SODIUM
     Indication: HYPOTHYROIDISM
     Dosage: 0.75MCG TABLET ONCE A DAY BY MOUTH
     Route: 048

REACTIONS (4)
  - Product physical issue [Unknown]
  - Incorrect drug administration duration [Not Recovered/Not Resolved]
  - Poor quality drug administered [Unknown]
  - Feeling abnormal [Unknown]

NARRATIVE: CASE EVENT DATE: 1995
